FAERS Safety Report 6661386-0 (Version None)
Quarter: 2010Q1

REPORT INFORMATION
  Report Type: 
  Country: None (occurrence: None)
  Receive Date: 20100331
  Receipt Date: 20100325
  Transmission Date: 20100710
  Serious: Yes (Life-Threatening, Other)
  Sender: FDA-Public Use
  Company Number: PHHY2010DE18479

PATIENT
  Sex: Female
  Weight: 135 kg

DRUGS (9)
  1. ALISKIREN ALI+ [Suspect]
     Indication: HYPERTENSION
     Dosage: 300 MG, PER DAY
     Route: 048
     Dates: start: 20090324
  2. EXFORGE [Suspect]
     Dosage: 1 DF (160/10 MG) PER DAY
     Route: 048
  3. ASPIRIN [Suspect]
     Dosage: 1400 (UNITS NOT SPECIFIED)
     Route: 048
  4. SIOFOR [Suspect]
     Dosage: 1700 MG, PER DAY
     Route: 048
  5. JANUMET [Suspect]
     Dosage: 1000 MG, PER DAY
     Route: 048
  6. METOPROLOL SUCCINATE [Suspect]
     Dosage: 47.5 MG, PER DAY
     Route: 048
  7. MOXONIDINE [Suspect]
     Dosage: 0.4 MG, PER DAY
     Route: 048
  8. CARMEN [Suspect]
     Dosage: 10 MG, PER DAY
     Route: 048
  9. CITALOPRAM HYDROBROMIDE [Suspect]
     Dosage: 20 MG, PER DAY
     Route: 048

REACTIONS (10)
  - ANGINA PECTORIS [None]
  - BLOOD PRESSURE INCREASED [None]
  - CEREBROVASCULAR ACCIDENT [None]
  - CORONARY ARTERY DISEASE [None]
  - DIABETES MELLITUS [None]
  - HAEMOGLOBIN DECREASED [None]
  - HEART RATE DECREASED [None]
  - LEFT VENTRICULAR HYPERTROPHY [None]
  - MICROALBUMINURIA [None]
  - PROTEINURIA [None]
